FAERS Safety Report 15272239 (Version 3)
Quarter: 2019Q4

REPORT INFORMATION
  Report Type: Spontaneous
  Country: US (occurrence: US)
  Receive Date: 20180813
  Receipt Date: 20191028
  Transmission Date: 20200122
  Serious: Yes (Other)
  Sender: FDA-Public Use
  Company Number: US-ENDO PHARMACEUTICALS INC-2018-040522

PATIENT
  Age: 58 Year
  Sex: Male
  Weight: 79.37 kg

DRUGS (10)
  1. NORCO [Concomitant]
     Active Substance: ACETAMINOPHEN\HYDROCODONE BITARTRATE
     Indication: BREAKTHROUGH PAIN
     Dosage: 10 MG, BID
     Route: 065
     Dates: start: 2009
  2. XIAFLEX [Suspect]
     Active Substance: COLLAGENASE CLOSTRIDIUM HISTOLYTICUM
     Dosage: UNK, CYCLE 1, INJECTION 1
     Route: 026
     Dates: start: 20180713
  3. XIAFLEX [Suspect]
     Active Substance: COLLAGENASE CLOSTRIDIUM HISTOLYTICUM
     Dosage: UNK, CYCLE 3, INJECTION 1 AND 2
     Route: 026
     Dates: start: 2018
  4. VALIUM [Concomitant]
     Active Substance: DIAZEPAM
     Indication: MUSCLE SPASMS
     Dosage: 5 MG, TID
     Route: 065
     Dates: start: 2017
  5. XIAFLEX [Suspect]
     Active Substance: COLLAGENASE CLOSTRIDIUM HISTOLYTICUM
     Dosage: UNK, CYCLE 2, INJECTION 1 AND 2
     Route: 026
     Dates: start: 2018
  6. METHADONE [Concomitant]
     Active Substance: METHADONE HYDROCHLORIDE
     Indication: PAIN
     Dosage: 10 MG, TID
     Route: 065
     Dates: start: 2009
  7. XIAFLEX [Suspect]
     Active Substance: COLLAGENASE CLOSTRIDIUM HISTOLYTICUM
     Indication: PEYRONIE^S DISEASE
     Dosage: UNK, CYCLE 1, INJECTION 2
     Route: 026
     Dates: start: 20180727
  8. XIAFLEX [Suspect]
     Active Substance: COLLAGENASE CLOSTRIDIUM HISTOLYTICUM
     Dosage: UNK, CYCLE 4, INJECTION 1 AND 2
     Route: 026
     Dates: start: 2019
  9. ZOLOFT [Concomitant]
     Active Substance: SERTRALINE HYDROCHLORIDE
     Indication: DEPRESSION
     Dosage: 50 MG, UNKNOWN
     Route: 065
     Dates: start: 2014
  10. COZAAR [Concomitant]
     Active Substance: LOSARTAN POTASSIUM
     Indication: HYPERTENSION
     Dosage: 100 MG, UNKNOWN
     Route: 065
     Dates: start: 2011

REACTIONS (9)
  - Vascular rupture [Unknown]
  - Thrombosis [Unknown]
  - Pain [Unknown]
  - Genital swelling [Recovered/Resolved]
  - Peyronie^s disease [Unknown]
  - Genital contusion [Unknown]
  - Haematoma [Unknown]
  - Drug ineffective [Unknown]
  - Contusion [Unknown]

NARRATIVE: CASE EVENT DATE: 20180727
